FAERS Safety Report 23648229 (Version 1)
Quarter: 2024Q1

REPORT INFORMATION
  Report Type: Spontaneous
  Country: PR (occurrence: None)
  Receive Date: 20240318
  Receipt Date: 20240318
  Transmission Date: 20240409
  Serious: No
  Sender: FDA-Public Use
  Company Number: None

PATIENT
  Age: 61 Year
  Sex: Female
  Weight: 94.05 kg

DRUGS (6)
  1. MOUNJARO [Suspect]
     Active Substance: TIRZEPATIDE
     Indication: Diabetes mellitus
     Dosage: 4 INJECTIONS WEEKLY SUBCUTANEOUS?
     Route: 058
     Dates: start: 20240123
  2. LEVOTHYROXINE [Concomitant]
     Active Substance: LEVOTHYROXINE\LEVOTHYROXINE SODIUM
  3. LISINOPRIL [Concomitant]
     Active Substance: LISINOPRIL
  4. METOPROLOL [Concomitant]
     Active Substance: METOPROLOL
  5. METFORMIN [Concomitant]
     Active Substance: METFORMIN HYDROCHLORIDE
  6. ASPIRIN [Concomitant]
     Active Substance: ASPIRIN

REACTIONS (4)
  - Nausea [None]
  - Somnolence [None]
  - Ageusia [None]
  - Drug ineffective [None]

NARRATIVE: CASE EVENT DATE: 20240124
